FAERS Safety Report 11885642 (Version 2)
Quarter: 2016Q2

REPORT INFORMATION
  Report Type: Report from Study
  Country: US (occurrence: US)
  Receive Date: 20160104
  Receipt Date: 20160510
  Transmission Date: 20160815
  Serious: Yes (Death, Life-Threatening, Hospitalization, Other)
  Sender: FDA-Public Use
  Company Number: US-BAYER-2015-182424

PATIENT
  Age: 62 Year
  Sex: Male

DRUGS (21)
  1. ADEMPAS [Suspect]
     Active Substance: RIOCIGUAT
     Indication: PULMONARY ARTERIAL HYPERTENSION
     Dosage: 1.5MG (COMBINING 1MG AND 0.5MG TABS)
     Route: 048
     Dates: start: 20150414
  2. ADEMPAS [Suspect]
     Active Substance: RIOCIGUAT
     Indication: PULMONARY ARTERIAL HYPERTENSION
     Dosage: 1.5 MG, TID
     Route: 048
     Dates: start: 20150427
  3. ADEMPAS [Suspect]
     Active Substance: RIOCIGUAT
     Indication: PULMONARY ARTERIAL HYPERTENSION
     Dosage: 1.5 MG, THREE TIMES DAILY
     Route: 048
     Dates: end: 20150815
  4. LASIX [Concomitant]
     Active Substance: FUROSEMIDE
  5. ATROVENT [Concomitant]
     Active Substance: IPRATROPIUM BROMIDE
  6. VITAMIN D [Concomitant]
     Active Substance: CHOLECALCIFEROL
  7. COREG [Concomitant]
     Active Substance: CARVEDILOL
  8. FLONASE [Concomitant]
     Active Substance: FLUTICASONE PROPIONATE
  9. MULTIVITAMINS PLUS IRON [Concomitant]
  10. ARMOUR THYROID [Concomitant]
     Active Substance: THYROID, PORCINE
  11. AMBIEN [Concomitant]
     Active Substance: ZOLPIDEM TARTRATE
  12. ADEMPAS [Suspect]
     Active Substance: RIOCIGUAT
     Indication: PULMONARY ARTERIAL HYPERTENSION
     Dosage: UNK
     Dates: start: 20150319, end: 20150815
  13. LETAIRIS [Concomitant]
     Active Substance: AMBRISENTAN
     Indication: PULMONARY HYPERTENSION
     Dosage: 10 MG, QD
     Dates: start: 20110512, end: 20150829
  14. SYMBICORT [Concomitant]
     Active Substance: BUDESONIDE\FORMOTEROL FUMARATE DIHYDRATE
  15. ADEMPAS [Suspect]
     Active Substance: RIOCIGUAT
     Indication: PULMONARY ARTERIAL HYPERTENSION
     Dosage: UNK
  16. REMODULIN [Concomitant]
     Active Substance: TREPROSTINIL
  17. DOBUTAMINE [Concomitant]
     Active Substance: DOBUTAMINE\DOBUTAMINE HYDROCHLORIDE
  18. ENALAPRIL W/HYDROCHLOROTHIAZIDE [Concomitant]
     Active Substance: ENALAPRIL\HYDROCHLOROTHIAZIDE
  19. LIPITOR [Concomitant]
     Active Substance: ATORVASTATIN CALCIUM
  20. COUMADIN [Concomitant]
     Active Substance: WARFARIN SODIUM
  21. ADEMPAS [Suspect]
     Active Substance: RIOCIGUAT
     Indication: PULMONARY ARTERIAL HYPERTENSION
     Dosage: 1.5MG (COMBINING 1MG AND 0.5MG TABS)
     Route: 048
     Dates: start: 20150319, end: 20150815

REACTIONS (11)
  - Malaise [None]
  - Pulmonary hypertension [Fatal]
  - Renal disorder [None]
  - Oedema [None]
  - Cardiac disorder [None]
  - General physical health deterioration [None]
  - Pulmonary arterial hypertension [None]
  - Hypoglycaemia [None]
  - Renal disorder [None]
  - Hypotension [Unknown]
  - Fluid retention [Unknown]

NARRATIVE: CASE EVENT DATE: 20150423
